FAERS Safety Report 7647731-8 (Version None)
Quarter: 2011Q3

REPORT INFORMATION
  Report Type: 
  Country: None (occurrence: None)
  Receive Date: 20110801
  Receipt Date: 20110801
  Transmission Date: 20111222
  Serious: Yes (Hospitalization, Other)
  Sender: FDA-Public Use
  Company Number: None

PATIENT
  Sex: Female
  Weight: 68.038 kg

DRUGS (1)
  1. CHANTIX [Suspect]
     Indication: SMOKING CESSATION THERAPY
     Dates: start: 20090115, end: 20090215

REACTIONS (8)
  - ABDOMINAL DISCOMFORT [None]
  - GAIT DISTURBANCE [None]
  - VENOUS INSUFFICIENCY [None]
  - DYSPNOEA [None]
  - CARDIOVASCULAR DISORDER [None]
  - WEIGHT INCREASED [None]
  - HYPERTENSION [None]
  - OEDEMA [None]
